FAERS Safety Report 20741923 (Version 1)
Quarter: 2022Q2

REPORT INFORMATION
  Report Type: Spontaneous
  Country: FR (occurrence: FR)
  Receive Date: 20220423
  Receipt Date: 20220423
  Transmission Date: 20220721
  Serious: Yes (Hospitalization)
  Sender: FDA-Public Use
  Company Number: None

PATIENT
  Age: 81 Year
  Sex: Male

DRUGS (2)
  1. CLOPIDOGREL BISULFATE [Suspect]
     Active Substance: CLOPIDOGREL BISULFATE
     Indication: Product used for unknown indication
     Dosage: THERAPY START DATE AND END DATE : NASK
     Route: 048
  2. WARFARIN SODIUM [Suspect]
     Active Substance: WARFARIN SODIUM
     Indication: Product used for unknown indication
     Dosage: 1 DOSAGE FORMS DAILY; 1 TAB PER DAY,THERAPY START DATE AND END DATE : NASK
     Route: 048

REACTIONS (1)
  - Conjunctival haemorrhage [Recovering/Resolving]

NARRATIVE: CASE EVENT DATE: 20220318
